FAERS Safety Report 7047755-8 (Version None)
Quarter: 2010Q4

REPORT INFORMATION
  Report Type: 
  Country: None (occurrence: None)
  Receive Date: 20101015
  Receipt Date: 20101008
  Transmission Date: 20110411
  Serious: Yes (Other)
  Sender: FDA-Public Use
  Company Number: US-PFIZER INC-2010129096

PATIENT
  Sex: Female
  Weight: 63.5 kg

DRUGS (4)
  1. LIPITOR [Suspect]
     Indication: BLOOD CHOLESTEROL INCREASED
     Dosage: 20 MG, 1X/DAY
     Route: 048
     Dates: start: 19950101
  2. METOPROLOL [Concomitant]
     Indication: HYPERTENSION
     Dosage: 100 MG, UNK
  3. AMLODIPINE BESYLATE AND BENAZEPRIL HCL [Concomitant]
     Indication: HYPERTENSION
     Dosage: 50/20 MG
  4. PLAVIX [Concomitant]
     Indication: HYPERTENSION
     Dosage: UNK

REACTIONS (2)
  - COLON CANCER [None]
  - GLUCOSE TOLERANCE IMPAIRED [None]
